FAERS Safety Report 14471929 (Version 10)
Quarter: 2018Q4

REPORT INFORMATION
  Report Type: Spontaneous
  Country: CA (occurrence: CA)
  Receive Date: 20180131
  Receipt Date: 20181116
  Transmission Date: 20190204
  Serious: Yes (Life-Threatening, Hospitalization, Disabling, Other)
  Sender: FDA-Public Use
  Company Number: CA-GILEAD-2018-0318214

PATIENT
  Age: 63 Year
  Sex: Male
  Weight: 65 kg

DRUGS (2)
  1. HARVONI [Suspect]
     Active Substance: LEDIPASVIR\SOFOSBUVIR
     Indication: CHRONIC HEPATITIS C
     Dosage: 1 DF, QD
     Route: 065
     Dates: start: 20141118, end: 20150210
  2. RABEPRAZOLE [Concomitant]
     Active Substance: RABEPRAZOLE
     Indication: GASTROOESOPHAGEAL REFLUX DISEASE
     Dosage: 20 MG, QD
     Route: 048

REACTIONS (18)
  - Thrombosis [Unknown]
  - Anaesthetic complication [Unknown]
  - Haemorrhagic stroke [Recovered/Resolved]
  - Hepatocellular carcinoma [Unknown]
  - Terminal state [Not Recovered/Not Resolved]
  - Portal vein thrombosis [Recovered/Resolved]
  - Thrombosis [Recovered/Resolved]
  - Oesophageal mass [Recovered/Resolved]
  - Endoscopy upper gastrointestinal tract [Recovered/Resolved]
  - Hepatic failure [Not Recovered/Not Resolved]
  - Microwave therapy [Unknown]
  - Blood albumin decreased [Unknown]
  - Portal vein occlusion [Unknown]
  - Suicidal ideation [Unknown]
  - Atrial fibrillation [Recovered/Resolved]
  - Pneumonia aspiration [Recovered/Resolved]
  - Coronary artery disease [Unknown]
  - Blood bilirubin increased [Unknown]

NARRATIVE: CASE EVENT DATE: 201508
